FAERS Safety Report 13836270 (Version 2)
Quarter: 2017Q3

REPORT INFORMATION
  Report Type: Spontaneous
  Country: NL (occurrence: NL)
  Receive Date: 20170804
  Receipt Date: 20170807
  Transmission Date: 20171127
  Serious: Yes (Other)
  Sender: FDA-Public Use
  Company Number: PHHY2017NL113450

PATIENT
  Age: 19 Year
  Sex: Male

DRUGS (2)
  1. METHYLPHENIDATE HYDROCHLORIDE. [Suspect]
     Active Substance: METHYLPHENIDATE HYDROCHLORIDE
     Indication: TIC
     Dosage: 54 MG, QD (54 MG/DAY)
     Route: 065
     Dates: start: 2009
  2. RISPERIDONE. [Suspect]
     Active Substance: RISPERIDONE
     Indication: TIC
     Dosage: 1 MG, QD (1 MG/DAY)
     Route: 065
     Dates: start: 2009

REACTIONS (2)
  - Breast swelling [Recovered/Resolved]
  - Hyperprolactinaemia [Recovered/Resolved]
